FAERS Safety Report 5766338-0 (Version None)
Quarter: 2008Q2

REPORT INFORMATION
  Report Type: 
  Country: None (occurrence: None)
  Receive Date: 20080605
  Receipt Date: 20080521
  Transmission Date: 20081010
  Serious: Yes (Other)
  Sender: FDA-Public Use
  Company Number: 2008S1008793

PATIENT
  Age: 29 Year
  Sex: Male

DRUGS (4)
  1. CETIRIZINE HCL [Suspect]
     Indication: DRUG USE FOR UNKNOWN INDICATION
     Dosage: ORAL
     Route: 048
  2. SALBUTAMOL SULFATE (SALBUTAMOL SULFATE) [Suspect]
     Indication: DRUG USE FOR UNKNOWN INDICATION
  3. CHANTIX [Suspect]
     Indication: SMOKING CESSATION THERAPY
     Dosage: 1 MG; TWICE A DAY; ORAL
     Route: 048
  4. COZAAR [Suspect]
     Indication: DRUG USE FOR UNKNOWN INDICATION

REACTIONS (1)
  - CONVULSION [None]
